FAERS Safety Report 10267785 (Version 1)
Quarter: 2014Q2

REPORT INFORMATION
  Report Type: Spontaneous
  Country: US (occurrence: None)
  Receive Date: 20140626
  Receipt Date: 20140626
  Transmission Date: 20141212
  Serious: No
  Sender: FDA-Public Use
  Company Number: None

PATIENT
  Age: 56 Year
  Sex: Female
  Weight: 68.04 kg

DRUGS (6)
  1. DEXILANT [Suspect]
     Indication: EROSIVE OESOPHAGITIS
     Dosage: 1 PILL ONCE DAILY TAKEN BY MOUTH
     Route: 048
     Dates: start: 20140604, end: 20140604
  2. RELPAX [Concomitant]
  3. MULTI VITAMIN/MINERAL SUPPLEMENT CONTAINING VITAMIN C, VITAMIN D, VITAMIN E, THIAMIN, RIBOFLAVIN, NIACIN, PYRIDOXINE, FOLIC ACID, COBALAMIN, BIOTIN, PANTOTHENIC ACID, SELENIUM AND ZINC [Concomitant]
  4. VITAMIN D [Concomitant]
  5. FISH OIL [Concomitant]
  6. MAGNESIUM [Concomitant]

REACTIONS (2)
  - Nausea [None]
  - Vomiting [None]
